FAERS Safety Report 7325496-7 (Version None)
Quarter: 2011Q1

REPORT INFORMATION
  Report Type: 
  Country: None (occurrence: None)
  Receive Date: 20110302
  Receipt Date: 20110224
  Transmission Date: 20110831
  Serious: Yes (Other)
  Sender: FDA-Public Use
  Company Number: AU-BRISTOL-MYERS SQUIBB COMPANY-15573488

PATIENT
  Sex: Female

DRUGS (1)
  1. KARVEA [Suspect]
     Dates: start: 20060101

REACTIONS (1)
  - BLOOD SODIUM DECREASED [None]
